FAERS Safety Report 15651446 (Version 2)
Quarter: 2019Q4

REPORT INFORMATION
  Report Type: Report from Study
  Country: US (occurrence: US)
  Receive Date: 20181123
  Receipt Date: 20191018
  Transmission Date: 20200122
  Serious: Yes (Disabling, Other)
  Sender: FDA-Public Use
  Company Number: US-SA-2018SA318734

PATIENT
  Age: 77 Year
  Sex: Male

DRUGS (3)
  1. INSULIN GLARGINE [Suspect]
     Active Substance: INSULIN GLARGINE
     Indication: TYPE 2 DIABETES MELLITUS
     Dosage: 44 U, UNK
     Route: 058
     Dates: start: 201802
  2. INSULIN GLARGINE [Suspect]
     Active Substance: INSULIN GLARGINE
     Dosage: UP TO 42 UNITS, ONCE A DAY AT 8 PM
     Route: 058
  3. INSULIN GLARGINE [Suspect]
     Active Substance: INSULIN GLARGINE
     Dosage: 46 U, UNK
     Route: 058

REACTIONS (3)
  - Seizure [Recovering/Resolving]
  - Hypoacusis [Not Recovered/Not Resolved]
  - Glycosylated haemoglobin increased [Unknown]
